FAERS Safety Report 4515786-5 (Version None)
Quarter: 2004Q4

REPORT INFORMATION
  Report Type: 
  Country: None (occurrence: None)
  Receive Date: 20041129
  Receipt Date: 20041119
  Transmission Date: 20050328
  Serious: Yes (Hospitalization)
  Sender: FDA-Public Use
  Company Number: 2004-11-1075

PATIENT
  Age: 3 Year
  Sex: Male
  Weight: 13 kg

DRUGS (1)
  1. CELESTONE [Suspect]
     Dosage: ORAL
     Route: 048

REACTIONS (3)
  - DYSKINESIA [None]
  - DYSTONIA [None]
  - TORTICOLLIS [None]
